FAERS Safety Report 8398795-8 (Version None)
Quarter: 2012Q2

REPORT INFORMATION
  Report Type: 
  Country: None (occurrence: None)
  Receive Date: 20120524
  Receipt Date: 20120511
  Transmission Date: 20120825
  Serious: Yes (Other)
  Sender: FDA-Public Use
  Company Number: 2012SP025501

PATIENT
  Age: 33 Year
  Sex: Female
  Weight: 77 kg

DRUGS (1)
  1. NEXPLANON [Suspect]
     Indication: CONTRACEPTION
     Dosage: 68 MG; SC
     Route: 058
     Dates: start: 20110714, end: 20120125

REACTIONS (5)
  - MALAISE [None]
  - IMPLANT SITE REACTION [None]
  - DEVICE BREAKAGE [None]
  - DISCOMFORT [None]
  - MEDICAL DEVICE COMPLICATION [None]
